FAERS Safety Report 12892640 (Version 1)
Quarter: 2016Q4

REPORT INFORMATION
  Report Type: Spontaneous
  Country: US (occurrence: US)
  Receive Date: 20161027
  Receipt Date: 20161027
  Transmission Date: 20170207
  Serious: Yes (Hospitalization)
  Sender: FDA-Public Use
  Company Number: None

PATIENT
  Age: 73 Year
  Sex: Male
  Weight: 80.2 kg

DRUGS (12)
  1. VALPROATE [Concomitant]
     Active Substance: VALPROIC ACID
  2. TERAZOSIN [Concomitant]
     Active Substance: TERAZOSIN\TERAZOSIN HYDROCHLORIDE
  3. KEPPRA [Concomitant]
     Active Substance: LEVETIRACETAM
  4. CEREBYX [Suspect]
     Active Substance: FOSPHENYTOIN SODIUM
     Indication: SEIZURE
     Route: 040
     Dates: start: 20150518, end: 20150522
  5. VAMCOMYCIN [Concomitant]
     Active Substance: VANCOMYCIN
  6. INSULIN REGULAQR [Concomitant]
  7. PANTOPRAZOLE [Concomitant]
     Active Substance: PANTOPRAZOLE SODIUM
  8. MEROPENEM. [Concomitant]
     Active Substance: MEROPENEM
  9. ATIVAN [Concomitant]
     Active Substance: LORAZEPAM
  10. FOSPHENYTOIN [Concomitant]
     Active Substance: FOSPHENYTOIN\FOSPHENYTOIN SODIUM
  11. ESOMEPRAZOLE [Concomitant]
     Active Substance: ESOMEPRAZOLE
  12. ZOSYN [Concomitant]
     Active Substance: PIPERACILLIN SODIUM\TAZOBACTAM SODIUM

REACTIONS (1)
  - Purple glove syndrome [None]

NARRATIVE: CASE EVENT DATE: 20150522
